FAERS Safety Report 18621965 (Version 4)
Quarter: 2021Q2

REPORT INFORMATION
  Report Type: Spontaneous
  Country: PL (occurrence: PL)
  Receive Date: 20201216
  Receipt Date: 20210405
  Transmission Date: 20210717
  Serious: Yes (Other)
  Sender: FDA-Public Use
  Company Number: PL-SUN PHARMACEUTICAL INDUSTRIES LTD-2020RR-271045

PATIENT
  Age: 53 Year
  Sex: Male

DRUGS (3)
  1. ESCITALOPRAM [Suspect]
     Active Substance: ESCITALOPRAM OXALATE
     Indication: ANXIETY
     Dosage: 10 MILLIGRAM, UNK
     Route: 065
     Dates: start: 202003
  2. ESCITALOPRAM [Suspect]
     Active Substance: ESCITALOPRAM OXALATE
     Indication: REACTIVE PSYCHOSIS
     Dosage: 20 MILLIGRAM, DAILY
     Route: 065
  3. PREGABALIN. [Suspect]
     Active Substance: PREGABALIN
     Indication: REACTIVE PSYCHOSIS
     Dosage: 300 MILLIGRAM, DAILY
     Route: 065

REACTIONS (2)
  - Libido increased [Unknown]
  - Drug ineffective [Unknown]
